FAERS Safety Report 15601794 (Version 4)
Quarter: 2019Q2

REPORT INFORMATION
  Report Type: Spontaneous
  Country: US (occurrence: US)
  Receive Date: 20181109
  Receipt Date: 20190606
  Transmission Date: 20190711
  Serious: No
  Sender: FDA-Public Use
  Company Number: US-PFIZER INC-2018461598

PATIENT
  Age: 64 Year
  Sex: Female

DRUGS (8)
  1. CODEINE [Suspect]
     Active Substance: CODEINE
     Dosage: UNK
  2. TRAMADOL. [Suspect]
     Active Substance: TRAMADOL
     Dosage: UNK
  3. NEURONTIN [Suspect]
     Active Substance: GABAPENTIN
     Dosage: UNK
  4. PROMETHAZINE HCL [Suspect]
     Active Substance: PROMETHAZINE HYDROCHLORIDE
     Dosage: UNK
  5. VERAPAMIL HCL [Suspect]
     Active Substance: VERAPAMIL HYDROCHLORIDE
     Dosage: UNK
  6. PHENERGAN [Suspect]
     Active Substance: PROMETHAZINE HYDROCHLORIDE
     Dosage: UNK
  7. GABAPENTIN. [Suspect]
     Active Substance: GABAPENTIN
     Dosage: UNK
  8. COVERA-HS [Suspect]
     Active Substance: VERAPAMIL HYDROCHLORIDE
     Indication: ANGINA PECTORIS
     Dosage: UNK

REACTIONS (1)
  - Drug hypersensitivity [Unknown]
